FAERS Safety Report 8093583-4 (Version None)
Quarter: 2012Q1

REPORT INFORMATION
  Report Type: 
  Country: None (occurrence: None)
  Receive Date: 20120129
  Receipt Date: 20111026
  Transmission Date: 20120608
  Serious: No
  Sender: FDA-Public Use
  Company Number: US-ABBOTT-11P-163-0868321-00

PATIENT
  Sex: Female

DRUGS (4)
  1. HUMIRA [Suspect]
     Indication: RHEUMATOID ARTHRITIS
     Dosage: 40 MILLIGRAM EVERY TWO WEEKS
     Route: 058
     Dates: start: 20070101, end: 20090101
  2. HUMIRA [Suspect]
     Dates: start: 20111020
  3. LEVOTHYROXINE SODIUM [Concomitant]
     Indication: HYPOTHYROIDISM
  4. METHOTREXATE [Concomitant]
     Indication: RHEUMATOID ARTHRITIS
     Dosage: FIVE 2.5MG TABLETS WEEKLY

REACTIONS (2)
  - MALAISE [None]
  - DIZZINESS [None]
